FAERS Safety Report 17662534 (Version 2)
Quarter: 2021Q2

REPORT INFORMATION
  Report Type: Spontaneous
  Country: AU (occurrence: AU)
  Receive Date: 20200413
  Receipt Date: 20210513
  Transmission Date: 20210716
  Serious: Yes (Other)
  Sender: FDA-Public Use
  Company Number: AU-GLAXOSMITHKLINE-AU2020060058

PATIENT
  Age: 63 Year
  Sex: Female

DRUGS (1)
  1. NICABATE [Suspect]
     Active Substance: NICOTINE
     Indication: SMOKING CESSATION THERAPY
     Dosage: 4 MG

REACTIONS (5)
  - Drug ineffective [Unknown]
  - Nicotine dependence [Unknown]
  - Blindness unilateral [Unknown]
  - Arthritis [Unknown]
  - Wrong technique in product usage process [Unknown]
